FAERS Safety Report 4621942-8 (Version None)
Quarter: 2005Q1

REPORT INFORMATION
  Report Type: 
  Country: None (occurrence: None)
  Receive Date: 20050328
  Receipt Date: 20050310
  Transmission Date: 20050727
  Serious: Yes (Other)
  Sender: FDA-Public Use
  Company Number: 182387

PATIENT
  Age: 51 Year
  Sex: Female
  Weight: 92.9874 kg

DRUGS (41)
  1. AVONEX [Suspect]
     Indication: MULTIPLE SCLEROSIS
     Dosage: SEE IMAGE
     Dates: start: 19960101, end: 19970101
  2. AVONEX [Suspect]
     Indication: MULTIPLE SCLEROSIS
     Dosage: SEE IMAGE
     Dates: start: 19981101, end: 20030627
  3. NATALIZUMAB [Concomitant]
  4. CELEXA [Concomitant]
  5. NORVASC [Concomitant]
  6. BACLOFEN [Concomitant]
  7. NORTRIPTYLINE HCL [Concomitant]
  8. DOXEPIN HCL [Concomitant]
  9. PREVACID [Concomitant]
  10. SKELAXIN [Concomitant]
  11. SYMMETREL [Concomitant]
  12. COMBIVENT [Concomitant]
  13. FEMHRT [Concomitant]
  14. PRILOSEC [Concomitant]
  15. NEXIUM [Concomitant]
  16. ACETAMINOPHEN [Concomitant]
  17. TIAZAC [Concomitant]
  18. PLAVIX [Concomitant]
  19. AMITRIPTYLINE HCL [Concomitant]
  20. WELLBUTRIN [Concomitant]
  21. RYNATANSA [Concomitant]
  22. SYPHEDRINE [Concomitant]
  23. CRISOPRODOL [Concomitant]
  24. TRILEPTAL [Concomitant]
  25. MIRALEX [Concomitant]
  26. BIAXIN XL [Concomitant]
  27. TUSSIZONG [Concomitant]
  28. MULTI-VITAMIN [Concomitant]
  29. VITAMIN E [Concomitant]
  30. CALCIUM CARBONATE [Concomitant]
  31. FISH OIL [Concomitant]
  32. IRON [Concomitant]
  33. AMOXIL [Concomitant]
  34. CELEBREX [Concomitant]
  35. TRAZADONE [Concomitant]
  36. MARCAINE [Concomitant]
  37. LIDOCAINE [Concomitant]
  38. VERSED [Concomitant]
  39. FENTANYL CITRATE [Concomitant]
  40. DARVOCET-N 100 [Concomitant]
  41. PROVIGIL [Concomitant]

REACTIONS (11)
  - ALANINE AMINOTRANSFERASE INCREASED [None]
  - ASPARTATE AMINOTRANSFERASE INCREASED [None]
  - BACK PAIN [None]
  - BLOOD ALKALINE PHOSPHATASE INCREASED [None]
  - GAMMA-GLUTAMYLTRANSFERASE INCREASED [None]
  - HEPATIC STEATOSIS [None]
  - MULTIPLE SCLEROSIS [None]
  - NECK PAIN [None]
  - SERUM FERRITIN DECREASED [None]
  - STRESS [None]
  - WEIGHT INCREASED [None]
